FAERS Safety Report 10645344 (Version 1)
Quarter: 2014Q4

REPORT INFORMATION
  Report Type: Report from Study
  Country: US (occurrence: US)
  Receive Date: 20141211
  Receipt Date: 20141211
  Transmission Date: 20150529
  Serious: Yes (Other)
  Sender: FDA-Public Use
  Company Number: PHEH2014US024451

PATIENT
  Sex: Male

DRUGS (1)
  1. TOBI [Suspect]
     Active Substance: TOBRAMYCIN
     Indication: CYSTIC FIBROSIS
     Dosage: 300 MG, BID (28 DAYS ON AND 28 DAYS OFF)
     Route: 055

REACTIONS (3)
  - Condition aggravated [Unknown]
  - Cystic fibrosis [Unknown]
  - Productive cough [Unknown]
